FAERS Safety Report 6818131-5 (Version None)
Quarter: 2010Q3

REPORT INFORMATION
  Report Type: 
  Country: None (occurrence: None)
  Receive Date: 20100706
  Receipt Date: 20100701
  Transmission Date: 20110219
  Serious: Yes (Other)
  Sender: FDA-Public Use
  Company Number: FR-TYCO HEALTHCARE/MALLINCKRODT-T201001513

PATIENT
  Age: 66 Year
  Sex: Male

DRUGS (3)
  1. OXYCODONE HCL [Suspect]
     Indication: ANALGESIC THERAPY
     Dosage: 120 MG, QD FOR 6 MONTHS
  2. FENTANYL [Interacting]
     Indication: ANALGESIC THERAPY
     Dosage: 4 PUFFS OF 200 UG/PUFF
     Route: 045
  3. ESCITALOPRAM [Interacting]
     Indication: AFFECTIVE DISORDER
     Dosage: 5 MG, QD

REACTIONS (13)
  - AFFECTIVE DISORDER [None]
  - DIARRHOEA [None]
  - DRUG INTERACTION [None]
  - DRUG TOXICITY [None]
  - HYPERHIDROSIS [None]
  - MYDRIASIS [None]
  - NIGHT SWEATS [None]
  - PANIC ATTACK [None]
  - SEROTONIN SYNDROME [None]
  - TREMOR [None]
  - VISION BLURRED [None]
  - VISUAL IMPAIRMENT [None]
  - WEIGHT DECREASED [None]
